FAERS Safety Report 14976861 (Version 1)
Quarter: 2018Q2

REPORT INFORMATION
  Report Type: Spontaneous
  Country: IT (occurrence: IT)
  Receive Date: 20180605
  Receipt Date: 20180605
  Transmission Date: 20180711
  Serious: Yes (Other)
  Sender: FDA-Public Use
  Company Number: IT-BIOMARINAP-IT-2018-118526

PATIENT
  Age: 17 Year
  Sex: Male

DRUGS (1)
  1. ALDURAZYME [Suspect]
     Active Substance: LARONIDASE
     Indication: PRODUCT USED FOR UNKNOWN INDICATION
     Dosage: 8 DF, UNK
     Route: 065
     Dates: start: 20120605

REACTIONS (1)
  - Heart valve operation [Recovered/Resolved]

NARRATIVE: CASE EVENT DATE: 20141013
